FAERS Safety Report 7798794-0 (Version None)
Quarter: 2011Q4

REPORT INFORMATION
  Report Type: 
  Country: None (occurrence: None)
  Receive Date: 20111004
  Receipt Date: 20111004
  Transmission Date: 20120403
  Serious: No
  Sender: FDA-Public Use
  Company Number: None

PATIENT
  Age: 73 Year
  Sex: Male
  Weight: 81.6475 kg

DRUGS (1)
  1. PROVIGIL [Suspect]
     Indication: SLEEP DISORDER
     Dosage: # 1. EVERY DAY
     Dates: start: 20110829, end: 20110918

REACTIONS (2)
  - NERVOUSNESS [None]
  - DRUG INEFFECTIVE [None]
